FAERS Safety Report 21634183 (Version 1)
Quarter: 2022Q4

REPORT INFORMATION
  Report Type: Spontaneous
  Country: US (occurrence: US)
  Receive Date: 20221123
  Receipt Date: 20221123
  Transmission Date: 20230113
  Serious: Yes (Hospitalization)
  Sender: FDA-Public Use
  Company Number: US-PFIZER INC-202201317929

PATIENT
  Age: 61 Year
  Sex: Female

DRUGS (1)
  1. PAXLOVID [Suspect]
     Active Substance: NIRMATRELVIR\RITONAVIR
     Indication: COVID-19 treatment
     Dosage: 2-150MG NIRMATRELVIR AND 100MG RITONAVIR TABLET TWICE DAILY: MORNING AND NIGHT
     Dates: start: 20221110, end: 20221113

REACTIONS (6)
  - Oxygen saturation decreased [Not Recovered/Not Resolved]
  - Neuralgia [Recovering/Resolving]
  - Myalgia [Recovered/Resolved]
  - Vomiting [Recovered/Resolved]
  - Taste disorder [Recovered/Resolved]
  - Nausea [Recovered/Resolved]

NARRATIVE: CASE EVENT DATE: 20221111
